FAERS Safety Report 5797420-X (Version None)
Quarter: 2008Q3

REPORT INFORMATION
  Report Type: 
  Country: None (occurrence: None)
  Receive Date: 20080701
  Receipt Date: 20080610
  Transmission Date: 20090109
  Serious: No
  Sender: FDA-Public Use
  Company Number: US-BOEHRINGER INGELHEIM GMBH, GERMANY-2008-BP-04376BP

PATIENT
  Sex: Female

DRUGS (8)
  1. SPIRIVA [Suspect]
     Indication: BRONCHITIS
     Route: 055
     Dates: start: 20071001
  2. SPIRIVA [Suspect]
     Indication: HYPERSENSITIVITY
  3. NORVASC [Concomitant]
  4. LOPRESSOR [Concomitant]
  5. ZOCOR [Concomitant]
  6. NEXIUM [Concomitant]
  7. CELEBREX [Concomitant]
  8. KLONOPIN [Concomitant]

REACTIONS (1)
  - ALOPECIA [None]
